FAERS Safety Report 10213887 (Version 1)
Quarter: 2014Q2

REPORT INFORMATION
  Report Type: Spontaneous
  Country: US (occurrence: US)
  Receive Date: 20140603
  Receipt Date: 20140603
  Transmission Date: 20141212
  Serious: No
  Sender: FDA-Public Use
  Company Number: US-009507513-1406USA000403

PATIENT
  Sex: Female

DRUGS (1)
  1. MIRALAX [Suspect]
     Indication: GASTROINTESTINAL MOTILITY DISORDER
     Dosage: 1 X 3 DAYS/WK.1 ENVELOPE IN JUICE
     Route: 048

REACTIONS (2)
  - Exposure during pregnancy [Unknown]
  - Product quality issue [Unknown]
